FAERS Safety Report 12945284 (Version 1)
Quarter: 2016Q4

REPORT INFORMATION
  Report Type: Spontaneous
  Country: US (occurrence: US)
  Receive Date: 20161115
  Receipt Date: 20161115
  Transmission Date: 20170207
  Serious: Yes (Death)
  Sender: FDA-Public Use
  Company Number: None

PATIENT
  Age: 63 Year
  Sex: Male
  Weight: 105.12 kg

DRUGS (17)
  1. CRANBERRY CAPSULE [Concomitant]
     Active Substance: DIETARY SUPPLEMENT
  2. PANTOPRA- ZOLE [Concomitant]
  3. NIFEDIPINE. [Concomitant]
     Active Substance: NIFEDIPINE
  4. EZETIMIBE. [Concomitant]
     Active Substance: EZETIMIBE
  5. CLOPIDOGREL [Concomitant]
     Active Substance: CLOPIDOGREL BISULFATE
  6. REPATHA [Suspect]
     Active Substance: EVOLOCUMAB
     Indication: TYPE IIA HYPERLIPIDAEMIA
     Dosage: ?          OTHER FREQUENCY:EVERY 14 DAYS;?
     Route: 058
     Dates: start: 20160912, end: 20161105
  7. MULTIVITAMIN [Concomitant]
     Active Substance: VITAMINS
  8. REPATHA [Suspect]
     Active Substance: EVOLOCUMAB
     Indication: CORONARY ARTERY DISEASE
     Dosage: ?          OTHER FREQUENCY:EVERY 14 DAYS;?
     Route: 058
     Dates: start: 20160912, end: 20161105
  9. ASPIRIN. [Concomitant]
     Active Substance: ASPIRIN
  10. PITAVASTATIN [Concomitant]
     Active Substance: PITAVASTATIN
  11. NITROGLYCERIN. [Concomitant]
     Active Substance: NITROGLYCERIN
  12. UBIQUINONE [Concomitant]
     Active Substance: UBIDECARENONE
  13. GLUCOSAMINE [Concomitant]
     Active Substance: GLUCOSAMINE
  14. HYDROCHLOROTHIAZIDE-LOSARTAN METHIMAZOLE [Concomitant]
  15. IMDUR [Concomitant]
     Active Substance: ISOSORBIDE MONONITRATE
  16. VITAMIN E [Concomitant]
     Active Substance: .ALPHA.-TOCOPHEROL
  17. GINKGO [Concomitant]
     Active Substance: GINKGO

REACTIONS (2)
  - Myocardial infarction [None]
  - Sudden cardiac death [None]

NARRATIVE: CASE EVENT DATE: 20161105
